FAERS Safety Report 10521173 (Version 2)
Quarter: 2014Q4

REPORT INFORMATION
  Report Type: Spontaneous
  Country: DE (occurrence: DE)
  Receive Date: 20141016
  Receipt Date: 20141030
  Transmission Date: 20150528
  Serious: Yes (Hospitalization)
  Sender: FDA-Public Use
  Company Number: DE-AMGEN-DEUSP2014078039

PATIENT
  Age: 70 Year
  Sex: Female
  Weight: 48.4 kg

DRUGS (7)
  1. CYCLOPHOSPHAMIDE. [Suspect]
     Active Substance: CYCLOPHOSPHAMIDE
     Indication: BREAST CANCER
     Dosage: 900 MG, Q2WK
     Route: 042
     Dates: start: 20140820
  2. CYCLOPHOSPHAMIDE. [Suspect]
     Active Substance: CYCLOPHOSPHAMIDE
     Dosage: 820 MG/M2, Q2WK
     Route: 065
     Dates: start: 20140903, end: 20140911
  3. PACLITAXEL. [Suspect]
     Active Substance: PACLITAXEL
     Indication: BREAST CANCER
     Dosage: 867.75 MG, Q2WK
     Route: 042
     Dates: start: 20140625
  4. NEULASTA [Suspect]
     Active Substance: PEGFILGRASTIM
     Indication: PRODUCT USED FOR UNKNOWN INDICATION
     Dosage: 6 MG, UNK
     Route: 065
     Dates: start: 20140626, end: 20140904
  5. EPIRUBICIN [Suspect]
     Active Substance: EPIRUBICIN
     Indication: BREAST CANCER
     Dosage: 135 MG, Q2WK
     Route: 042
     Dates: start: 20140820
  6. EPIRUBICIN [Suspect]
     Active Substance: EPIRUBICIN
     Dosage: 123 MG/M2, Q2WK
     Route: 065
     Dates: start: 20140903, end: 20140911
  7. PACLITAXEL. [Suspect]
     Active Substance: PACLITAXEL
     Dosage: 157.5 MG/M2, Q2WK
     Route: 065
     Dates: start: 20140806

REACTIONS (1)
  - Urinary tract infection [Recovered/Resolved]

NARRATIVE: CASE EVENT DATE: 20140916
